FAERS Safety Report 10078288 (Version 2)
Quarter: 2014Q2

REPORT INFORMATION
  Report Type: Spontaneous
  Country: AU (occurrence: AU)
  Receive Date: 20140415
  Receipt Date: 20140429
  Transmission Date: 20141212
  Serious: Yes (Other)
  Sender: FDA-Public Use
  Company Number: AU-RANBAXY-2014RR-80191

PATIENT
  Age: 17 Year
  Sex: Female
  Weight: 61 kg

DRUGS (3)
  1. PARACETAMOL [Suspect]
     Indication: PRODUCT USED FOR UNKNOWN INDICATION
     Dosage: 500 MG, DAILY
     Route: 048
  2. CODEINE [Suspect]
     Indication: ACUTE TONSILLITIS
     Dosage: 10 MG, DAILY
     Route: 048
     Dates: start: 19870724, end: 19870724
  3. BACTRIM DS [Suspect]
     Indication: ACUTE TONSILLITIS
     Dosage: 2 DF, DAILY
     Route: 048
     Dates: start: 19870724, end: 19870724

REACTIONS (3)
  - Respiratory depression [Recovered/Resolved]
  - Urticaria [Recovered/Resolved]
  - Cyanosis [Recovered/Resolved]
